FAERS Safety Report 13164794 (Version 1)
Quarter: 2017Q1

REPORT INFORMATION
  Report Type: Spontaneous
  Country: US (occurrence: US)
  Receive Date: 20170130
  Receipt Date: 20170130
  Transmission Date: 20170428
  Serious: Yes (Hospitalization)
  Sender: FDA-Public Use
  Company Number: US-BEH-2017077622

PATIENT
  Age: 34 Year
  Sex: Female

DRUGS (3)
  1. STIMATE [Suspect]
     Active Substance: DESMOPRESSIN ACETATE
     Indication: HAEMORRHAGE
  2. STIMATE [Suspect]
     Active Substance: DESMOPRESSIN ACETATE
     Indication: TOOTH EXTRACTION
  3. STIMATE [Suspect]
     Active Substance: DESMOPRESSIN ACETATE
     Indication: VON WILLEBRAND^S DISEASE
     Dosage: 1 SPRAY IN EACH NOSTRIL ONCE EVERY 24 HOURS
     Route: 045
     Dates: start: 20150223

REACTIONS (1)
  - Cholecystectomy [Unknown]

NARRATIVE: CASE EVENT DATE: 20161026
